FAERS Safety Report 13485941 (Version 3)
Quarter: 2017Q2

REPORT INFORMATION
  Report Type: Spontaneous
  Country: US (occurrence: US)
  Receive Date: 20170426
  Receipt Date: 20170502
  Transmission Date: 20170830
  Serious: Yes (Hospitalization, Other)
  Sender: FDA-Public Use
  Company Number: US-GLAXOSMITHKLINE-US2017GSK060204

PATIENT
  Age: 78 Year
  Sex: Female

DRUGS (6)
  1. SILDENAFIL CITRATE. [Concomitant]
     Active Substance: SILDENAFIL CITRATE
  2. FLOLAN [Suspect]
     Active Substance: EPOPROSTENOL SODIUM
     Indication: PULMONARY HYPERTENSION
     Dosage: 16.5 DF, CO
     Route: 042
     Dates: start: 20131031
  3. FLOLAN DILUENT PH 12 SOLUTION FOR INJECTION [Suspect]
     Active Substance: GLYCINE\MANNITOL\SODIUM CHLORIDE
     Indication: PULMONARY HYPERTENSION
  4. REVATIO [Concomitant]
     Active Substance: SILDENAFIL CITRATE
  5. FLOLAN [Suspect]
     Active Substance: EPOPROSTENOL SODIUM
     Indication: PULMONARY HYPERTENSION
  6. FLOLAN DILUENT PH 12 SOLUTION FOR INJECTION [Suspect]
     Active Substance: GLYCINE\MANNITOL\SODIUM CHLORIDE
     Indication: PULMONARY HYPERTENSION
     Dosage: UNK, U
     Dates: start: 20161101

REACTIONS (8)
  - Central venous catheterisation [Unknown]
  - Influenza [Unknown]
  - Nasal congestion [Unknown]
  - Feeling jittery [Unknown]
  - Productive cough [Unknown]
  - Pyrexia [Unknown]
  - Device dislocation [Recovered/Resolved]
  - Viral upper respiratory tract infection [Unknown]

NARRATIVE: CASE EVENT DATE: 201704
